FAERS Safety Report 6290992-0 (Version None)
Quarter: 2009Q3

REPORT INFORMATION
  Report Type: 
  Country: None (occurrence: None)
  Receive Date: 20090730
  Receipt Date: 20090722
  Transmission Date: 20100115
  Serious: Yes (Other)
  Sender: FDA-Public Use
  Company Number: FR-PFIZER INC-2009236869

PATIENT
  Age: 47 Year

DRUGS (11)
  1. TAHOR [Suspect]
     Dosage: 10 MG, 1X/DAY
     Route: 048
  2. CYMBALTA [Suspect]
     Indication: DEPRESSION
     Dosage: 60 MG, 1X/DAY
     Route: 048
     Dates: start: 20090228, end: 20090310
  3. COUMADIN [Suspect]
     Indication: THROMBOANGIITIS OBLITERANS
     Dosage: 5 MG, 1X/DAY
     Route: 048
     Dates: end: 20090310
  4. PLAVIX [Suspect]
     Indication: THROMBOANGIITIS OBLITERANS
     Dosage: 75 MG, 1X/DAY
     Route: 048
  5. KARDEGIC [Suspect]
     Indication: THROMBOANGIITIS OBLITERANS
     Dosage: 160 MG, 1X/DAY
     Route: 048
  6. LYRICA [Concomitant]
     Dosage: 200 MG, 2X/DAY
     Route: 048
  7. RIVOTRIL [Concomitant]
     Dosage: 2 DF, 1X/DAY
     Route: 048
  8. ACTISKENAN [Concomitant]
     Dosage: 10 MG, UNK
     Route: 048
  9. POLYETHYLENE GLYCOL [Concomitant]
     Dosage: UNK
     Route: 048
  10. DAFALGAN [Concomitant]
     Dosage: 500 MG, 4X/DAY
     Route: 048
  11. MOPRAL [Concomitant]
     Dosage: 20 MG, 1X/DAY
     Route: 048

REACTIONS (2)
  - INTERNATIONAL NORMALISED RATIO INCREASED [None]
  - PETECHIAE [None]
